FAERS Safety Report 6082509-0 (Version None)
Quarter: 2009Q1

REPORT INFORMATION
  Report Type: 
  Country: None (occurrence: None)
  Receive Date: 20090218
  Receipt Date: 20090211
  Transmission Date: 20090719
  Serious: Yes (Hospitalization)
  Sender: FDA-Public Use
  Company Number: GB-BAYER-200910391BNE

PATIENT
  Age: 29 Year
  Sex: Female

DRUGS (1)
  1. CLOTRIMAZOLE [Suspect]
     Indication: CANDIDIASIS
     Route: 067
     Dates: start: 20080801

REACTIONS (1)
  - NO ADVERSE EVENT [None]
